FAERS Safety Report 14925901 (Version 1)
Quarter: 2018Q2

REPORT INFORMATION
  Report Type: Spontaneous
  Country: FR (occurrence: FR)
  Receive Date: 20180522
  Receipt Date: 20180522
  Transmission Date: 20180711
  Serious: Yes (Other)
  Sender: FDA-Public Use
  Company Number: FR-TEVA-2018-FR-895146

PATIENT
  Age: 70 Year
  Sex: Female
  Weight: 96.4 kg

DRUGS (3)
  1. METOPROLOL (TARTRATE DE) [Concomitant]
     Active Substance: METOPROLOL TARTRATE
     Route: 065
  2. FUMAFER [Concomitant]
     Active Substance: FERROUS FUMARATE
     Route: 065
  3. TRAMADOL. [Suspect]
     Active Substance: TRAMADOL
     Indication: PAIN
     Dosage: 6 DOSAGE FORMS DAILY; MAXIMUM 6 PAR JOUR
     Route: 048
     Dates: start: 201710, end: 20171102

REACTIONS (3)
  - Persecutory delusion [Recovered/Resolved]
  - Confusional state [Recovered/Resolved]
  - Hallucinations, mixed [Recovered/Resolved]

NARRATIVE: CASE EVENT DATE: 201710
